FAERS Safety Report 12235644 (Version 1)
Quarter: 2016Q2

REPORT INFORMATION
  Report Type: Spontaneous
  Country: DE (occurrence: DE)
  Receive Date: 20160404
  Receipt Date: 20160404
  Transmission Date: 20160815
  Serious: Yes (Other)
  Sender: FDA-Public Use
  Company Number: DE-PFIZER INC-2016183003

PATIENT
  Age: 77 Year
  Sex: Female
  Weight: 80 kg

DRUGS (4)
  1. RAMIPRIL. [Concomitant]
     Active Substance: RAMIPRIL
     Indication: HYPERTENSION
     Dosage: 5 MG, 2X/DAY. FOR A LONGER PERIOD
     Route: 048
  2. METOPROLOL. [Concomitant]
     Active Substance: METOPROLOL
     Indication: CARDIAC FAILURE
     Dosage: 50 MG, 2X/DAY, FOR A LONGER PERIOD
     Route: 048
  3. IBUPROFEN. [Suspect]
     Active Substance: IBUPROFEN
     Indication: ARTHRALGIA
     Dosage: 1200 MG, DAILY
     Route: 048
  4. EUCALYPTUS OIL [Suspect]
     Active Substance: EUCALYPTUS OIL
     Indication: COUGH
     Dosage: 200 MG, DAILY
     Route: 048

REACTIONS (2)
  - Haematochezia [Unknown]
  - Mucous stools [Unknown]

NARRATIVE: CASE EVENT DATE: 20160303
